FAERS Safety Report 15658457 (Version 3)
Quarter: 2019Q3

REPORT INFORMATION
  Report Type: Spontaneous
  Country: US (occurrence: US)
  Receive Date: 20181126
  Receipt Date: 20190902
  Transmission Date: 20191004
  Serious: Yes (Death)
  Sender: FDA-Public Use
  Company Number: US-PFIZER INC-2018184742

PATIENT
  Age: 51 Year
  Sex: Female

DRUGS (1)
  1. SUTENT [Suspect]
     Active Substance: SUNITINIB MALATE
     Indication: ADRENAL GLAND CANCER
     Dosage: 50 MG, UNK

REACTIONS (5)
  - Death [Fatal]
  - Neoplasm progression [Unknown]
  - Product use in unapproved indication [Unknown]
  - Product dispensing error [Unknown]
  - Off label use [Unknown]
